FAERS Safety Report 4509364-1 (Version None)
Quarter: 2004Q4

REPORT INFORMATION
  Report Type: 
  Country: None (occurrence: None)
  Receive Date: 20041025
  Receipt Date: 20040813
  Transmission Date: 20050328
  Serious: Yes (Other)
  Sender: FDA-Public Use
  Company Number: US-JNJFOC-20040805095

PATIENT
  Age: 83 Year
  Sex: Female
  Weight: 65.318 kg

DRUGS (8)
  1. REMICADE [Suspect]
     Indication: RHEUMATOID ARTHRITIS
     Dosage: 300 MG, INTRAVENOUS
     Route: 042
  2. LOPRESSOR [Concomitant]
  3. SYNTHROID [Concomitant]
  4. ARAVA [Concomitant]
  5. ECTORIN (ACETYLSALICYLIC ACID) [Concomitant]
  6. TOPAMAX [Concomitant]
  7. ZETIA (CHOLESTEROL - AND TRIGLYCERIDE REDUCERS) [Concomitant]
  8. DIDRONEL [Concomitant]

REACTIONS (2)
  - CHEST PAIN [None]
  - INFUSION RELATED REACTION [None]
